FAERS Safety Report 8508080-9 (Version None)
Quarter: 2012Q2

REPORT INFORMATION
  Report Type: 
  Country: None (occurrence: None)
  Receive Date: 20120405
  Receipt Date: 20090915
  Transmission Date: 20120825
  Serious: Yes (Disabling)
  Sender: FDA-Public Use
  Company Number: PHEH2009US10233

PATIENT
  Age: 57 Year
  Sex: Female
  Weight: 71.7 kg

DRUGS (5)
  1. RECLAST [Suspect]
     Dosage: 5MG/100 ML, SINGLE, INTRAVENOUS
     Route: 042
     Dates: start: 20090813, end: 20090813
  2. LYRICA [Concomitant]
  3. CHOLESTYRAMINE [Concomitant]
  4. SYNTHROID [Concomitant]
  5. ZETIA [Concomitant]

REACTIONS (10)
  - POLYARTHRITIS [None]
  - PAIN [None]
  - MYALGIA [None]
  - PUBIC PAIN [None]
  - ARTHRALGIA [None]
  - BACK PAIN [None]
  - MUSCULOSKELETAL PAIN [None]
  - HEADACHE [None]
  - MUSCULOSKELETAL STIFFNESS [None]
  - PAIN IN EXTREMITY [None]
